FAERS Safety Report 4331568-1 (Version None)
Quarter: 2004Q1

REPORT INFORMATION
  Report Type: 
  Country: None (occurrence: None)
  Receive Date: 20040329
  Receipt Date: 20040317
  Transmission Date: 20041129
  Serious: Yes (Hospitalization)
  Sender: FDA-Public Use
  Company Number: SU-2004-002043

PATIENT
  Sex: Male

DRUGS (1)
  1. BENICAR [Suspect]
     Indication: HYPERTENSION
     Dosage: 20 MG PO
     Route: 048

REACTIONS (3)
  - COLON CANCER METASTATIC [None]
  - METASTATIC CARCINOMA OF THE BLADDER [None]
  - RENAL FAILURE [None]
